FAERS Safety Report 17097873 (Version 1)
Quarter: 2019Q4

REPORT INFORMATION
  Report Type: Report from Study
  Country: JP (occurrence: JP)
  Receive Date: 20191202
  Receipt Date: 20191202
  Transmission Date: 20200122
  Serious: Yes (Death)
  Sender: FDA-Public Use
  Company Number: JP-KYOWAKIRIN-2019AKK018871

PATIENT

DRUGS (21)
  1. STALEVO [Suspect]
     Active Substance: CARBIDOPA\ENTACAPONE\LEVODOPA
     Indication: PARKINSON^S DISEASE
     Dosage: 350 MG
     Route: 048
     Dates: end: 20170501
  2. MEMARY [Concomitant]
     Active Substance: MEMANTINE HYDROCHLORIDE
     Dosage: 15 MG
     Route: 048
     Dates: start: 20170406, end: 20170412
  3. NOURIAST TABLETS [Suspect]
     Active Substance: ISTRADEFYLLINE
     Indication: PARKINSON^S DISEASE
     Dosage: 40 MG
     Route: 048
  4. APOMORPHINE [Suspect]
     Active Substance: APOMORPHINE
     Dosage: 1 MG
     Route: 058
     Dates: start: 20170302, end: 20170309
  5. APOMORPHINE [Suspect]
     Active Substance: APOMORPHINE
     Dosage: 2 MG
     Route: 058
     Dates: start: 20170317, end: 20170317
  6. APOMORPHINE [Suspect]
     Active Substance: APOMORPHINE
     Dosage: 2 MG
     Route: 058
     Dates: start: 20170320, end: 20170320
  7. APOMORPHINE [Suspect]
     Active Substance: APOMORPHINE
     Dosage: 2 MG
     Route: 058
     Dates: start: 20170404, end: 20170404
  8. APOMORPHINE [Suspect]
     Active Substance: APOMORPHINE
     Dosage: 2 MG
     Route: 058
     Dates: start: 20170310, end: 20170315
  9. APOMORPHINE [Suspect]
     Active Substance: APOMORPHINE
     Dosage: 2 MG
     Route: 058
     Dates: start: 20170322, end: 20170322
  10. APOMORPHINE [Suspect]
     Active Substance: APOMORPHINE
     Indication: PARKINSON^S DISEASE
     Dosage: 2 MG
     Route: 058
     Dates: start: 20170410, end: 20170410
  11. APOMORPHINE [Suspect]
     Active Substance: APOMORPHINE
     Dosage: 2 MG
     Route: 058
     Dates: start: 20170407, end: 20170407
  12. STALEVO [Suspect]
     Active Substance: CARBIDOPA\ENTACAPONE\LEVODOPA
     Dosage: 450 MG
     Route: 048
     Dates: start: 20170502
  13. MEMARY [Concomitant]
     Active Substance: MEMANTINE HYDROCHLORIDE
     Dosage: 10 MG
     Route: 048
     Dates: start: 20170327, end: 20170405
  14. APOMORPHINE [Suspect]
     Active Substance: APOMORPHINE
     Dosage: 2 MG
     Route: 058
     Dates: start: 20170402, end: 20170402
  15. TRERIEF [Suspect]
     Active Substance: ZONISAMIDE
     Indication: PARKINSON^S DISEASE
     Dosage: 50 MG
     Route: 048
  16. MEMARY [Concomitant]
     Active Substance: MEMANTINE HYDROCHLORIDE
     Dosage: 20 MG
     Route: 048
     Dates: start: 20170413
  17. APOMORPHINE [Suspect]
     Active Substance: APOMORPHINE
     Dosage: 2 MG
     Route: 058
     Dates: start: 20170327, end: 20170328
  18. REMINYL [Concomitant]
     Active Substance: GALANTAMINE
     Dosage: 8 MG
     Route: 048
     Dates: end: 20170306
  19. REMINYL [Concomitant]
     Active Substance: GALANTAMINE
     Dosage: 16 MG
     Route: 048
     Dates: start: 20170307
  20. NEUPRO [Suspect]
     Active Substance: ROTIGOTINE
     Indication: PARKINSON^S DISEASE
     Dosage: 36 MG
  21. MEMARY [Concomitant]
     Active Substance: MEMANTINE HYDROCHLORIDE
     Dosage: 5 MG
     Route: 048
     Dates: start: 20170323, end: 20170326

REACTIONS (3)
  - Dyskinesia [Not Recovered/Not Resolved]
  - Death [Fatal]
  - Somnolence [Not Recovered/Not Resolved]

NARRATIVE: CASE EVENT DATE: 20170304
